FAERS Safety Report 5290583-4 (Version None)
Quarter: 2007Q2

REPORT INFORMATION
  Report Type: 
  Country: None (occurrence: None)
  Receive Date: 20070405
  Receipt Date: 20070405
  Transmission Date: 20071010
  Serious: Yes (Hospitalization)
  Sender: FDA-Public Use
  Company Number: None

PATIENT
  Age: 86 Year
  Sex: Female

DRUGS (3)
  1. HYDROCHLOROTHIAZIDE 25MG TAB [Suspect]
     Indication: HYPERTENSION
     Dosage: PO QD
     Route: 048
     Dates: start: 20060601, end: 20061101
  2. ASPIRIN [Concomitant]
  3. APAP TAB [Concomitant]

REACTIONS (5)
  - DIZZINESS [None]
  - FALL [None]
  - HEAD INJURY [None]
  - ORTHOSTATIC HYPOTENSION [None]
  - SYNCOPE [None]
